APPROVED DRUG PRODUCT: TEMARIL
Active Ingredient: TRIMEPRAZINE TARTRATE
Strength: EQ 2.5MG BASE/5ML
Dosage Form/Route: SYRUP;ORAL
Application: N011316 | Product #003
Applicant: ALLERGAN HERBERT SKIN CARE DIV ALLERGAN INC
Approved: Approved Prior to Jan 1, 1982 | RLD: No | RS: No | Type: DISCN